FAERS Safety Report 9018900 (Version 1)
Quarter: 2013Q1

REPORT INFORMATION
  Report Type: Report from Study
  Country: DE (occurrence: DE)
  Receive Date: 20130118
  Receipt Date: 20130118
  Transmission Date: 20140127
  Serious: Yes (Hospitalization, Other)
  Sender: FDA-Public Use
  Company Number: DE-ABBOTT-13P-062-1034587-00

PATIENT
  Sex: Female

DRUGS (8)
  1. ZEMPLAR [Suspect]
     Indication: HYPERPARATHYROIDISM SECONDARY
     Route: 042
     Dates: start: 20110929
  2. BUPRENORPHINE [Concomitant]
     Indication: PRODUCT USED FOR UNKNOWN INDICATION
     Dosage: 35 ?G/H TOP
     Dates: start: 20120802, end: 20121127
  3. EPOETIN [Concomitant]
     Indication: PRODUCT USED FOR UNKNOWN INDICATION
     Route: 042
     Dates: start: 20120719, end: 20120802
  4. EPOETIN [Concomitant]
     Route: 042
     Dates: start: 20120802, end: 20120823
  5. VIANI [Concomitant]
     Indication: PRODUCT USED FOR UNKNOWN INDICATION
     Dosage: 50?G/250?G
     Route: 048
     Dates: start: 20120725
  6. PANTOPRAZOLE [Concomitant]
     Indication: PRODUCT USED FOR UNKNOWN INDICATION
     Route: 048
     Dates: start: 20091119, end: 20120731
  7. PANTOPRAZOLE [Concomitant]
     Route: 048
     Dates: start: 20120731
  8. PHOSPHONORM [Concomitant]
     Indication: PRODUCT USED FOR UNKNOWN INDICATION
     Route: 048
     Dates: start: 20120725

REACTIONS (7)
  - Gastric ulcer [Recovered/Resolved]
  - Occult blood positive [Recovered/Resolved]
  - Cholecystitis [Recovered/Resolved]
  - Cholelithiasis [Recovered/Resolved]
  - Gallbladder necrosis [Recovered/Resolved]
  - Restlessness [Recovered/Resolved]
  - Gastrooesophageal reflux disease [Unknown]
